FAERS Safety Report 17223454 (Version 3)
Quarter: 2024Q1

REPORT INFORMATION
  Report Type: Spontaneous
  Country: IT (occurrence: IT)
  Receive Date: 20200102
  Receipt Date: 20240304
  Transmission Date: 20240409
  Serious: Yes (Hospitalization, Other)
  Sender: FDA-Public Use
  Company Number: IT-TEVA-2019-IT-1154991

PATIENT
  Age: 77 Year
  Sex: Female

DRUGS (8)
  1. IRINOTECAN [Suspect]
     Active Substance: IRINOTECAN
     Indication: Adenocarcinoma
     Dosage: 125 MILLIGRAM, EVERY WEEK
     Route: 065
  2. IRINOTECAN [Suspect]
     Active Substance: IRINOTECAN
     Indication: Metastases to liver
  3. OXALIPLATIN [Suspect]
     Active Substance: OXALIPLATIN
     Indication: Adenocarcinoma
     Dosage: 85 MILLIGRAM/SQ. METER, 1 CYCLE  (85 MG/MQ DAY 1 EVERY 14 DAYS(Q14)
     Route: 065
     Dates: start: 2017, end: 201712
  4. OXALIPLATIN [Suspect]
     Active Substance: OXALIPLATIN
     Indication: Metastases to liver
  5. FLUOROURACIL [Suspect]
     Active Substance: FLUOROURACIL
     Indication: Adenocarcinoma
     Dosage: 1200 MILLIGRAM/SQ. METER, 9 CYCLE, 48 HOURS (Q14)
     Route: 042
     Dates: start: 2017, end: 201712
  6. FLUOROURACIL [Suspect]
     Active Substance: FLUOROURACIL
     Indication: Metastases to liver
     Dosage: 400 MILLIGRAM/SQ. METER, 9 CYCLE, DAYS 1,2 (Q14)
     Route: 065
     Dates: start: 2017, end: 201712
  7. LEUCOVORIN [Suspect]
     Active Substance: LEUCOVORIN\LEUCOVORIN CALCIUM
     Indication: Metastases to liver
     Dosage: 100 MILLIGRAM/SQ. METER, CYCLE (100 MG/MQ DAYS 1,2 (Q14)
     Route: 065
  8. LEUCOVORIN [Suspect]
     Active Substance: LEUCOVORIN\LEUCOVORIN CALCIUM
     Indication: Adenocarcinoma

REACTIONS (2)
  - Diarrhoea [Recovered/Resolved]
  - Gastrointestinal toxicity [Recovered/Resolved]

NARRATIVE: CASE EVENT DATE: 20171201
